FAERS Safety Report 9546793 (Version 1)
Quarter: 2013Q3

REPORT INFORMATION
  Report Type: Report from Study
  Country: RU (occurrence: RU)
  Receive Date: 20130924
  Receipt Date: 20130924
  Transmission Date: 20140515
  Serious: Yes (Other)
  Sender: FDA-Public Use
  Company Number: RU-ROCHE-1279528

PATIENT
  Sex: Male

DRUGS (3)
  1. PEGASYS [Suspect]
     Indication: HEPATITIS C
     Route: 058
     Dates: start: 20130910
  2. RIBAVIRIN [Suspect]
     Indication: HEPATITIS C
     Route: 048
     Dates: start: 20130910
  3. URSOLISIN [Concomitant]
     Indication: HEPATITIS C
     Route: 065
     Dates: start: 20130910

REACTIONS (5)
  - Body temperature increased [Not Recovered/Not Resolved]
  - Gingival disorder [Recovering/Resolving]
  - Oropharyngeal pain [Recovering/Resolving]
  - Headache [Not Recovered/Not Resolved]
  - Blood disorder [Not Recovered/Not Resolved]
